FAERS Safety Report 25837094 (Version 1)
Quarter: 2025Q3

REPORT INFORMATION
  Report Type: Spontaneous
  Country: EU (occurrence: EU)
  Receive Date: 20250923
  Receipt Date: 20250923
  Transmission Date: 20251021
  Serious: Yes (Other)
  Sender: ABBVIE
  Company Number: None

PATIENT
  Age: 34 Year
  Sex: Female

DRUGS (2)
  1. ATOGEPANT [Suspect]
     Active Substance: ATOGEPANT
     Indication: Migraine prophylaxis
     Route: 048
     Dates: start: 20250515, end: 20250718
  2. TRICLABENDAZOLE [Suspect]
     Active Substance: TRICLABENDAZOLE
     Indication: Anxiety disorder
     Dosage: EXTENDED RELEASE TABLET
     Route: 048
     Dates: start: 20250515, end: 20250718

REACTIONS (1)
  - Hepatic cytolysis [Recovered/Resolved]

NARRATIVE: CASE EVENT DATE: 20250716
